FAERS Safety Report 8058697-3 (Version None)
Quarter: 2012Q1

REPORT INFORMATION
  Report Type: 
  Country: None (occurrence: None)
  Receive Date: 20120120
  Receipt Date: 20120117
  Transmission Date: 20120608
  Serious: No
  Sender: FDA-Public Use
  Company Number: US-PFIZER INC-2012014377

PATIENT
  Sex: Male
  Weight: 132 kg

DRUGS (8)
  1. DIAZEPAM [Concomitant]
     Dosage: 5 MG, AS NEEDED
  2. MELOXICAM [Concomitant]
     Dosage: UNK
  3. ACETAMINOPHEN AND HYDROCODONE BITARTRATE [Concomitant]
     Dosage: 7.5/325 MG, AS NEEDED
     Route: 048
  4. THYROID TAB [Concomitant]
     Dosage: UNK
  5. WELLBUTRIN [Concomitant]
     Dosage: UNK
  6. CONCERTA [Concomitant]
     Dosage: UNK
  7. POTASSIUM PENICILLIN G [Suspect]
     Dosage: UNK
  8. FLECAINIDE [Concomitant]
     Dosage: UNK

REACTIONS (1)
  - HYPERSENSITIVITY [None]
